FAERS Safety Report 10373518 (Version 3)
Quarter: 2015Q1

REPORT INFORMATION
  Report Type: Report from Study
  Country: US (occurrence: US)
  Receive Date: 20140808
  Receipt Date: 20150213
  Transmission Date: 20150720
  Serious: Yes (Hospitalization, Other)
  Sender: FDA-Public Use
  Company Number: US-ABBVIE-14P-163-1269119-00

PATIENT
  Sex: Female
  Weight: 102.15 kg

DRUGS (8)
  1. ABILIFY [Concomitant]
     Active Substance: ARIPIPRAZOLE
     Indication: BIPOLAR DISORDER
  2. HUMIRA [Suspect]
     Active Substance: ADALIMUMAB
     Indication: INTESTINAL FISTULA
     Route: 065
     Dates: start: 20080515
  3. LAMICTAL [Concomitant]
     Active Substance: LAMOTRIGINE
     Indication: BIPOLAR DISORDER
  4. GEODON [Concomitant]
     Active Substance: ZIPRASIDONE HYDROCHLORIDE\ZIPRASIDONE MESYLATE
     Indication: BIPOLAR DISORDER
  5. ATIVAN [Concomitant]
     Active Substance: LORAZEPAM
     Indication: ANXIETY
  6. HUMIRA [Suspect]
     Active Substance: ADALIMUMAB
     Indication: CROHN^S DISEASE
  7. HUMIRA [Suspect]
     Active Substance: ADALIMUMAB
     Indication: CROHN^S DISEASE
     Route: 058
     Dates: start: 2007
  8. HUMIRA [Suspect]
     Active Substance: ADALIMUMAB
     Indication: GASTROINTESTINAL FISTULA
     Route: 058

REACTIONS (25)
  - Abdominal adhesions [Recovered/Resolved]
  - Injection site pain [Unknown]
  - Influenza [Unknown]
  - Gastrointestinal infection [Recovered/Resolved]
  - Perirectal abscess [Recovered/Resolved]
  - Intestinal obstruction [Recovered/Resolved]
  - Injection site pruritus [Recovered/Resolved]
  - Proctalgia [Recovered/Resolved]
  - Intestinal stenosis [Recovered/Resolved]
  - Injection site bruising [Not Recovered/Not Resolved]
  - Drug dose omission [Recovered/Resolved]
  - Perirectal abscess [Recovered/Resolved]
  - Diverticulum intestinal [Recovered/Resolved]
  - C-reactive protein increased [Recovered/Resolved]
  - Injection site warmth [Recovered/Resolved]
  - Perirectal abscess [Recovered/Resolved]
  - Incision site pain [Recovered/Resolved]
  - Diarrhoea [Unknown]
  - Abdominal adhesions [Recovered/Resolved]
  - Wrong technique in drug usage process [Recovered/Resolved]
  - Perirectal abscess [Recovered/Resolved]
  - Intestinal perforation [Recovered/Resolved]
  - Faeces hard [Recovered/Resolved]
  - Injection site mass [Recovered/Resolved]
  - Perirectal abscess [Recovered/Resolved]

NARRATIVE: CASE EVENT DATE: 2007
